FAERS Safety Report 6211144-6 (Version None)
Quarter: 2009Q2

REPORT INFORMATION
  Report Type: 
  Country: None (occurrence: None)
  Receive Date: 20090602
  Receipt Date: 20090522
  Transmission Date: 20091009
  Serious: Yes (Hospitalization, Other)
  Sender: FDA-Public Use
  Company Number: US-BAYER-US-2007-042109

PATIENT
  Age: 65 Year
  Sex: Female

DRUGS (1)
  1. BETASERON [Suspect]
     Indication: MULTIPLE SCLEROSIS
     Dosage: TOTAL DAILY DOSE: 8 MIU
     Route: 058
     Dates: start: 19940805, end: 20090101

REACTIONS (4)
  - FALL [None]
  - JOINT INJURY [None]
  - MUSCULAR WEAKNESS [None]
  - TYPE 1 DIABETES MELLITUS [None]
